FAERS Safety Report 25994836 (Version 1)
Quarter: 2025Q4

REPORT INFORMATION
  Report Type: Spontaneous
  Country: JP (occurrence: JP)
  Receive Date: 20251104
  Receipt Date: 20251104
  Transmission Date: 20260117
  Serious: Yes (Hospitalization)
  Sender: DAIICHI
  Company Number: JP-DAIICHI SANKYO, INC.-DS-2025-169973-JP

PATIENT
  Age: 57 Year
  Sex: Male

DRUGS (1)
  1. DATROWAY [Suspect]
     Active Substance: DATOPOTAMAB DERUXTECAN-DLNK
     Indication: Breast cancer recurrent
     Dosage: 6 MG/KG, ONCE EVERY 3 WK
     Route: 041
     Dates: start: 20250924

REACTIONS (1)
  - Disease progression [Unknown]

NARRATIVE: CASE EVENT DATE: 20251013
